FAERS Safety Report 13681221 (Version 12)
Quarter: 2020Q3

REPORT INFORMATION
  Report Type: Spontaneous
  Country: JP (occurrence: JP)
  Receive Date: 20170623
  Receipt Date: 20200813
  Transmission Date: 20201102
  Serious: Yes (Hospitalization, Other)
  Sender: FDA-Public Use
  Company Number: JP-UNITED THERAPEUTICS-UNT-2017-009354

PATIENT
  Age: 27 Year
  Sex: Female
  Weight: 56 kg

DRUGS (29)
  1. REMODULIN [Suspect]
     Active Substance: TREPROSTINIL
     Dosage: 0.060 ?G/KG, CONTINUING
     Route: 041
     Dates: start: 20170620
  2. LANSOPRAZOLE. [Concomitant]
     Active Substance: LANSOPRAZOLE
     Indication: GASTROOESOPHAGEAL REFLUX DISEASE
     Dosage: 15 MG, QD
     Route: 048
  3. OPSUMIT [Concomitant]
     Active Substance: MACITENTAN
     Indication: PULMONARY ARTERIAL HYPERTENSION
     Dosage: 10 MG, QD
     Route: 048
  4. FERRUM                             /00023501/ [Concomitant]
     Indication: IRON DEFICIENCY ANAEMIA
     Dosage: 100 MG, QD
     Route: 048
  5. SELTOUCH [Concomitant]
     Active Substance: FELBINAC
     Indication: BACK PAIN
     Dosage: UNK
     Route: 062
     Dates: start: 20160622, end: 20170106
  6. REMODULIN [Suspect]
     Active Substance: TREPROSTINIL
     Dosage: 0.04 ?G/KG, CONTINUING
     Route: 041
     Dates: start: 20170627
  7. OPSUMIT [Concomitant]
     Active Substance: MACITENTAN
     Dosage: UNK
     Route: 048
     Dates: start: 20160627
  8. LOXONIN [Concomitant]
     Active Substance: LOXOPROFEN SODIUM
     Indication: BACK PAIN
     Dosage: UNK
     Route: 062
     Dates: start: 20150823, end: 20150925
  9. VENTAVIS [Concomitant]
     Active Substance: ILOPROST
     Indication: PULMONARY ARTERIAL HYPERTENSION
     Dosage: UNK
     Dates: start: 20161102, end: 20170509
  10. CEFAZOLIN                          /00288502/ [Concomitant]
     Active Substance: CEFAZOLIN SODIUM
     Indication: PRODUCT USED FOR UNKNOWN INDICATION
     Dosage: 2 G, QD
     Route: 042
     Dates: start: 20161024, end: 20161030
  11. RUPAFIN [Concomitant]
     Active Substance: RUPATADINE FUMARATE
     Indication: PRODUCT USED FOR UNKNOWN INDICATION
     Dosage: UNK
     Route: 048
     Dates: start: 20190712
  12. REMODULIN [Suspect]
     Active Substance: TREPROSTINIL
     Indication: PULMONARY ARTERIAL HYPERTENSION
     Dosage: 0.072 ?G/KG, CONTINUING
     Route: 041
     Dates: start: 201704
  13. FERRUM                             /00023501/ [Concomitant]
     Dosage: UNK
     Route: 048
     Dates: start: 20160520
  14. TRACLEER [Concomitant]
     Active Substance: BOSENTAN
     Indication: PULMONARY ARTERIAL HYPERTENSION
     Dosage: UNK
     Route: 048
     Dates: start: 201507, end: 20160626
  15. LANSOPRAZOLE. [Concomitant]
     Active Substance: LANSOPRAZOLE
     Indication: GASTRITIS PROPHYLAXIS
     Dosage: UNK
     Route: 048
     Dates: start: 20150828
  16. HIRUDOID [Concomitant]
     Active Substance: GLYCOSAMINOGLYCANS
     Indication: ASTEATOSIS
     Dosage: UNK
     Route: 061
     Dates: start: 20160624
  17. CRAVIT [Concomitant]
     Active Substance: LEVOFLOXACIN
     Indication: PROPHYLAXIS
     Dosage: UNK
     Route: 048
     Dates: start: 20170721, end: 20171103
  18. MYSER                              /01249201/ [Concomitant]
     Active Substance: DIFLUPREDNATE
     Indication: PROPHYLAXIS
     Route: 061
  19. GENTACIN [Concomitant]
     Active Substance: GENTAMICIN SULFATE
     Indication: PROPHYLAXIS
     Route: 061
  20. PRIVINA                            /00419601/ [Concomitant]
     Indication: RHINITIS
     Route: 045
  21. TRAMCET [Concomitant]
     Active Substance: ACETAMINOPHEN\TRAMADOL
     Indication: PROPHYLAXIS
     Dosage: UNK
     Route: 048
     Dates: start: 20150805, end: 20170511
  22. REMODULIN [Suspect]
     Active Substance: TREPROSTINIL
     Dosage: 0.050 ?G/KG, CONTINUING
     Route: 041
     Dates: start: 20170613
  23. REMODULIN [Suspect]
     Active Substance: TREPROSTINIL
     Dosage: 0.0408 ?G/KG, CONTINUING
     Route: 041
     Dates: start: 20170627
  24. ADCIRCA [Concomitant]
     Active Substance: TADALAFIL
     Indication: PULMONARY ARTERIAL HYPERTENSION
     Dosage: 40 MG, QD
     Route: 048
     Dates: start: 201507
  25. UPTRAVI [Concomitant]
     Active Substance: SELEXIPAG
     Indication: PULMONARY ARTERIAL HYPERTENSION
     Dosage: 0.8 MG, BID
     Route: 048
     Dates: start: 20170615
  26. DICLOFENAC NA [Concomitant]
     Active Substance: DICLOFENAC SODIUM
     Indication: PRODUCT USED FOR UNKNOWN INDICATION
     Dosage: UNK
     Route: 065
     Dates: start: 20150806, end: 20150806
  27. REMODULIN [Suspect]
     Active Substance: TREPROSTINIL
     Dosage: UNK
     Route: 041
     Dates: start: 20170620
  28. FEXOFENADINE HYDROCHLORIDE. [Concomitant]
     Active Substance: FEXOFENADINE HYDROCHLORIDE
     Indication: RASH
     Dosage: 60 MG, BID
     Route: 048
     Dates: start: 20170513
  29. CARELOAD [Concomitant]
     Active Substance: BERAPROST SODIUM
     Indication: PULMONARY ARTERIAL HYPERTENSION
     Dosage: UNK
     Route: 048
     Dates: start: 201507, end: 20150805

REACTIONS (7)
  - Dermatitis allergic [Recovered/Resolved]
  - Device issue [Unknown]
  - Injection site erosion [Recovering/Resolving]
  - Injection site hypersensitivity [Recovering/Resolving]
  - Staphylococcal infection [Recovered/Resolved]
  - Device related infection [Recovered/Resolved]
  - Chest discomfort [Recovered/Resolved]

NARRATIVE: CASE EVENT DATE: 20170513
